FAERS Safety Report 6870388-0 (Version None)
Quarter: 2010Q3

REPORT INFORMATION
  Report Type: 
  Country: None (occurrence: None)
  Receive Date: 20100723
  Receipt Date: 20100714
  Transmission Date: 20110219
  Serious: No
  Sender: FDA-Public Use
  Company Number: US-BIOGENIDEC-2010BI024480

PATIENT
  Age: 53 Year
  Sex: Female

DRUGS (3)
  1. TYSABRI [Suspect]
     Indication: MULTIPLE SCLEROSIS
     Route: 042
     Dates: start: 20090201
  2. BENADRYL [Concomitant]
     Indication: PROPHYLAXIS
     Route: 042
     Dates: end: 20100401
  3. CLARITIN [Concomitant]
     Indication: PROPHYLAXIS
     Route: 048

REACTIONS (3)
  - FEELING COLD [None]
  - HEADACHE [None]
  - TREMOR [None]
